FAERS Safety Report 6186108-1 (Version None)
Quarter: 2009Q2

REPORT INFORMATION
  Report Type: 
  Country: None (occurrence: None)
  Receive Date: 20090507
  Receipt Date: 20090507
  Transmission Date: 20091009
  Serious: Yes (Life-Threatening)
  Sender: FDA-Public Use
  Company Number: None

PATIENT
  Sex: Female
  Weight: 79.3795 kg

DRUGS (2)
  1. LIPITOR [Suspect]
     Indication: DYSLIPIDAEMIA
     Dosage: 1 TABLET DAILY PO
     Route: 048
     Dates: start: 20090219, end: 20090310
  2. LIPITOR [Suspect]
     Dosage: 1/2 TABLET DAILY PO
     Route: 048
     Dates: start: 20090319, end: 20090402

REACTIONS (6)
  - FATIGUE [None]
  - IMPAIRED DRIVING ABILITY [None]
  - LIVER DISORDER [None]
  - MUSCLE DISORDER [None]
  - NECK PAIN [None]
  - SOMNOLENCE [None]
